FAERS Safety Report 4533905-1 (Version None)
Quarter: 2004Q4

REPORT INFORMATION
  Report Type: 
  Country: None (occurrence: None)
  Receive Date: 20041214
  Receipt Date: 20040901
  Transmission Date: 20050328
  Serious: No
  Sender: FDA-Public Use
  Company Number: US_0408105013

PATIENT
  Age: 61 Year
  Sex: Male
  Weight: 56.6996 kg

DRUGS (2)
  1. CIALIS [Suspect]
     Dosage: 20 MG
     Dates: start: 20040818
  2. HUMALOG [Suspect]

REACTIONS (4)
  - DIARRHOEA [None]
  - INSOMNIA [None]
  - PAIN IN EXTREMITY [None]
  - THERAPEUTIC RESPONSE DECREASED [None]
